FAERS Safety Report 13413901 (Version 1)
Quarter: 2017Q2

REPORT INFORMATION
  Report Type: Report from Study
  Country: US (occurrence: US)
  Receive Date: 20170407
  Receipt Date: 20170407
  Transmission Date: 20170830
  Serious: Yes (Hospitalization, Other)
  Sender: FDA-Public Use
  Company Number: US-GILEAD-2017-0263180

PATIENT
  Age: 77 Year
  Sex: Female

DRUGS (5)
  1. TOPROL XL [Concomitant]
     Active Substance: METOPROLOL SUCCINATE
  2. PROCRIT [Concomitant]
     Active Substance: ERYTHROPOIETIN
  3. REVATIO [Suspect]
     Active Substance: SILDENAFIL CITRATE
     Indication: PRODUCT USED FOR UNKNOWN INDICATION
     Route: 065
  4. LASIX [Concomitant]
     Active Substance: FUROSEMIDE
  5. AMBRISENTAN [Suspect]
     Active Substance: AMBRISENTAN
     Indication: PULMONARY ARTERIAL HYPERTENSION
     Dosage: 10 MG, QD
     Route: 065
     Dates: start: 20101022

REACTIONS (8)
  - Haemoglobin decreased [Unknown]
  - Dysphagia [Unknown]
  - Clostridium difficile infection [Unknown]
  - Pharyngitis [Unknown]
  - Endoscopy [Unknown]
  - Haematochezia [Unknown]
  - Scratch [Unknown]
  - Neck surgery [Unknown]

NARRATIVE: CASE EVENT DATE: 201703
